FAERS Safety Report 25099180 (Version 1)
Quarter: 2025Q1

REPORT INFORMATION
  Report Type: Spontaneous
  Country: US (occurrence: None)
  Receive Date: 20250319
  Receipt Date: 20250319
  Transmission Date: 20250409
  Serious: Yes (Life-Threatening, Hospitalization)
  Sender: FDA-CTU
  Company Number: None

PATIENT
  Age: 53 Year
  Sex: Male
  Weight: 103.87 kg

DRUGS (2)
  1. CLOZAPINE [Suspect]
     Active Substance: CLOZAPINE
     Indication: Schizoaffective disorder bipolar type
     Dosage: FREQUENCY : TWICE A DAY;?
     Route: 048
     Dates: end: 20250126
  2. TRILEPTAL [Suspect]
     Active Substance: OXCARBAZEPINE

REACTIONS (15)
  - Mental status changes [None]
  - Syncope [None]
  - Sepsis [None]
  - Heart rate decreased [None]
  - Tachypnoea [None]
  - Leukocytosis [None]
  - Lung opacity [None]
  - Pneumonia [None]
  - Cardiomyopathy [None]
  - Electrocardiogram ST-T segment abnormal [None]
  - Blood glucose increased [None]
  - Glomerular filtration rate abnormal [None]
  - Glycosylated haemoglobin increased [None]
  - Haemoglobin decreased [None]
  - C-reactive protein increased [None]

NARRATIVE: CASE EVENT DATE: 20241211
